FAERS Safety Report 19386096 (Version 1)
Quarter: 2021Q2

REPORT INFORMATION
  Report Type: Spontaneous
  Country: NL (occurrence: NL)
  Receive Date: 20210608
  Receipt Date: 20210608
  Transmission Date: 20210717
  Serious: Yes (Life-Threatening, Other)
  Sender: FDA-Public Use
  Company Number: NL-AUROBINDO-AUR-APL-2018-036031

PATIENT
  Age: 72 Year
  Sex: Female

DRUGS (11)
  1. PERINDOPRIL [Concomitant]
     Active Substance: PERINDOPRIL
     Indication: PRODUCT USED FOR UNKNOWN INDICATION
     Dosage: 1DD1
     Route: 048
     Dates: start: 20060424
  2. CALCI CHEW D3 [Concomitant]
     Active Substance: CALCIUM CARBONATE\CHOLECALCIFEROL
     Indication: PRODUCT USED FOR UNKNOWN INDICATION
     Dosage: IN THE EVENING, 1 TABLET
     Route: 048
     Dates: start: 20090416
  3. FOSTER                             /00500401/ [Concomitant]
     Active Substance: PIROXICAM
     Indication: PRODUCT USED FOR UNKNOWN INDICATION
     Dosage: 2DD 1 INHALATIE
     Route: 055
     Dates: start: 20130704
  4. PANTOPRAZOL                        /01263201/ [Concomitant]
     Active Substance: PANTOPRAZOLE
     Indication: PRODUCT USED FOR UNKNOWN INDICATION
     Dosage: 1DD1
     Route: 048
     Dates: start: 20070927
  5. CARBASALAATCALCIUM [Concomitant]
     Active Substance: CARBASPIRIN CALCIUM
     Indication: PRODUCT USED FOR UNKNOWN INDICATION
     Dosage: 1DD1
     Route: 048
     Dates: start: 20051206
  6. NITROGLYCERINE [Concomitant]
     Active Substance: NITROGLYCERIN
     Indication: PRODUCT USED FOR UNKNOWN INDICATION
     Dosage: WHEN NEEDED, AS NECESSARY
     Route: 060
     Dates: start: 20110510
  7. MONTELUKAST 10MG FILM?COATED TABLETS [Suspect]
     Active Substance: MONTELUKAST SODIUM
     Indication: ASTHMA
     Dosage: 10 MILLIGRAM
     Route: 065
     Dates: start: 20140413, end: 20140713
  8. VENTOLIN [Concomitant]
     Active Substance: ALBUTEROL SULFATE
     Indication: PRODUCT USED FOR UNKNOWN INDICATION
     Dosage: MAXIMAAL 4X PER DAG 1 INHALATIE, AS NECESSARY
     Route: 055
     Dates: start: 20130822
  9. SIMVASTATINE [Concomitant]
     Active Substance: SIMVASTATIN
     Indication: PRODUCT USED FOR UNKNOWN INDICATION
     Dosage: FOR THE NIGHT 1 TABLET
     Route: 048
     Dates: start: 20070927
  10. SPIRIVA [Concomitant]
     Active Substance: TIOTROPIUM BROMIDE MONOHYDRATE
     Indication: PRODUCT USED FOR UNKNOWN INDICATION
     Dosage: 1DD 1 INHALATIE
     Route: 055
  11. LOSARTAN. [Concomitant]
     Active Substance: LOSARTAN
     Indication: PRODUCT USED FOR UNKNOWN INDICATION
     Dosage: 1DD1
     Route: 048
     Dates: start: 20130405

REACTIONS (2)
  - Nightmare [Recovered/Resolved]
  - Somnambulism [Recovered/Resolved]
